FAERS Safety Report 4989864-0 (Version None)
Quarter: 2006Q2

REPORT INFORMATION
  Report Type: 
  Country: None (occurrence: None)
  Receive Date: 20060503
  Receipt Date: 20060412
  Transmission Date: 20061013
  Serious: Yes (Life-Threatening)
  Sender: FDA-Public Use
  Company Number: MY-AVENTIS-200612218EU

PATIENT
  Sex: Female

DRUGS (1)
  1. CLEXANE [Suspect]
     Indication: DEEP VEIN THROMBOSIS
     Route: 064
     Dates: start: 20050501, end: 20051201

REACTIONS (5)
  - CEREBRAL HAEMORRHAGE NEONATAL [None]
  - DRUG EXPOSURE DURING PREGNANCY [None]
  - FONTANELLE BULGING [None]
  - NEONATAL DISORDER [None]
  - SUBARACHNOID HAEMORRHAGE [None]
